FAERS Safety Report 9844900 (Version 1)
Quarter: 2014Q1

REPORT INFORMATION
  Report Type: Spontaneous
  Country: ES (occurrence: None)
  Receive Date: 20140122
  Receipt Date: 20140122
  Transmission Date: 20141002
  Serious: Yes (Hospitalization)
  Sender: FDA-Public Use
  Company Number: IMP_06946_2014

PATIENT
  Age: 54 Year
  Sex: Male

DRUGS (1)
  1. METFORMIN [Suspect]
     Indication: PRODUCT USED FOR UNKNOWN INDICATION

REACTIONS (12)
  - Lactic acidosis [None]
  - Blindness [None]
  - Hypoglycaemia [None]
  - Metabolic acidosis [None]
  - Renal failure acute [None]
  - Blood pressure decreased [None]
  - Vitreous haemorrhage [None]
  - Diabetic retinopathy [None]
  - Blood sodium increased [None]
  - Blood potassium increased [None]
  - Blood glucose increased [None]
  - Haemodialysis [None]
